FAERS Safety Report 8557310-6 (Version None)
Quarter: 2012Q3

REPORT INFORMATION
  Report Type: 
  Country: None (occurrence: None)
  Receive Date: 20120801
  Receipt Date: 20120727
  Transmission Date: 20120928
  Serious: Yes (Hospitalization, Disabling)
  Sender: FDA-Public Use
  Company Number: GR-PFIZER INC-2012183307

PATIENT
  Age: 61 Year
  Sex: Female

DRUGS (1)
  1. SUTENT [Suspect]
     Indication: METASTATIC RENAL CELL CARCINOMA
     Dosage: 50 MG, CYCLIC (4 WEEKS ON/ 2 WEEKS OFF)
     Route: 048
     Dates: start: 20120502

REACTIONS (7)
  - DIARRHOEA [None]
  - CARDIOGENIC SHOCK [None]
  - CARDIAC FAILURE ACUTE [None]
  - RENAL FAILURE ACUTE [None]
  - FATIGUE [None]
  - HEPATIC FAILURE [None]
  - VULVOVAGINITIS TRICHOMONAL [None]
